FAERS Safety Report 8971175 (Version 1)
Quarter: 2012Q4

REPORT INFORMATION
  Report Type: 
  Country: US (occurrence: US)
  Receive Date: 20121217
  Receipt Date: 20121217
  Transmission Date: 20130627
  Serious: Yes (Hospitalization)
  Sender: FDA-Public Use
  Company Number: US-GLAXOSMITHKLINE-A0903169A

PATIENT
  Age: 58 Year
  Sex: Female

DRUGS (2)
  1. AVANDARYL [Suspect]
     Indication: DIABETES MELLITUS
     Route: 048
     Dates: start: 20060609, end: 20060820
  2. AVANDIA [Suspect]
     Indication: DIABETES MELLITUS
     Route: 048

REACTIONS (3)
  - Myocardial infarction [Not Recovered/Not Resolved]
  - Cardiac failure congestive [Unknown]
  - Cardiovascular disorder [Unknown]
